FAERS Safety Report 4434309-2 (Version None)
Quarter: 2004Q3

REPORT INFORMATION
  Report Type: 
  Country: None (occurrence: None)
  Receive Date: 20040825
  Receipt Date: 20040817
  Transmission Date: 20050211
  Serious: Yes (Hospitalization)
  Sender: FDA-Public Use
  Company Number: CIP04001810

PATIENT
  Age: 70 Year
  Sex: Male

DRUGS (12)
  1. FURADANTIN [Suspect]
     Indication: URINARY TRACT INFECTION
     Dosage: THREE TIMES DAILY, ORAL
     Route: 048
     Dates: start: 20040809, end: 20040813
  2. TRENTAL [Suspect]
     Dates: end: 20040813
  3. VECTARION (ALMITRINE DIMESILATE) [Suspect]
     Dates: end: 20040813
  4. PRAXILENE (NAFTIDROFURYLO OXALATE) [Concomitant]
  5. CORDARONE [Concomitant]
  6. ASPIRIN [Concomitant]
  7. HYPERIUM (RILMEDINE) [Concomitant]
  8. LASIX [Concomitant]
  9. OMIX (TAMSULOSIN HYDROCHLORIDE) [Concomitant]
  10. COVERSYL (PERINDOPRIL) [Concomitant]
  11. PRAVASTATIN [Concomitant]
  12. OMEPRAZOLE [Concomitant]

REACTIONS (2)
  - CONDITION AGGRAVATED [None]
  - RENAL FAILURE [None]
